FAERS Safety Report 7971588-9 (Version None)
Quarter: 2011Q4

REPORT INFORMATION
  Report Type: 
  Country: None (occurrence: None)
  Receive Date: 20111212
  Receipt Date: 20111206
  Transmission Date: 20120403
  Serious: Yes (Other)
  Sender: FDA-Public Use
  Company Number: JP-PFIZER INC-2011296685

PATIENT
  Age: 75 Year
  Sex: Female
  Weight: 36.8 kg

DRUGS (13)
  1. RIFABUTIN [Suspect]
     Indication: MYCOBACTERIUM AVIUM COMPLEX INFECTION
     Dosage: 150 MG, 1X/DAY
     Route: 048
     Dates: start: 20100902, end: 20110926
  2. CYANOCOBALAMIN [Concomitant]
     Indication: PROPHYLAXIS
     Dosage: UNK
     Route: 048
  3. AVELOX [Concomitant]
     Dosage: 400 MG, 1X/DAY
     Route: 048
     Dates: start: 20101007, end: 20101022
  4. BETAMETHASONE [Concomitant]
     Dosage: UNK
     Route: 061
  5. FAMOTIDINE [Concomitant]
     Indication: PROPHYLAXIS
     Dosage: 20 MG, 1X/DAY
     Route: 048
  6. ETHAMBUTOL HYDROCHLORIDE [Concomitant]
     Indication: MYCOBACTERIUM AVIUM COMPLEX INFECTION
     Dosage: 500 MG, 1X/DAY
     Route: 048
  7. ACETAMINOPHEN [Concomitant]
     Indication: PYREXIA
     Dosage: 200 MG, 3X/DAY
     Route: 048
     Dates: end: 20100904
  8. CEFAZOLIN SODIUM [Concomitant]
     Indication: PROPHYLAXIS AGAINST DIARRHOEA
     Dosage: 1 G, 3X/DAY
     Route: 048
  9. DOGMATYL [Concomitant]
     Indication: PROPHYLAXIS
     Dosage: 50 MG, 1X/DAY
     Route: 048
  10. ZITHROMAX [Concomitant]
     Indication: MYCOBACTERIUM AVIUM COMPLEX INFECTION
     Dosage: 500 MG, MONDAY, THUESDAY AND WEDNESDAY
     Route: 048
     Dates: end: 20100920
  11. ACETAMINOPHEN [Concomitant]
     Dosage: 200 MG, AS NEEDED
     Route: 048
     Dates: start: 20100905
  12. ALLEGRA [Concomitant]
     Dosage: 60 MG, 2X/DAY
     Route: 048
  13. AVELOX [Concomitant]
     Indication: MYCOBACTERIUM AVIUM COMPLEX INFECTION
     Dosage: 300 MG, 1X/DAY
     Route: 048
     Dates: end: 20101006

REACTIONS (4)
  - CEREBRAL HAEMORRHAGE TRAUMATIC [None]
  - SUBDURAL HAEMATOMA [None]
  - PYREXIA [None]
  - DIARRHOEA [None]
